FAERS Safety Report 4516730-7 (Version None)
Quarter: 2004Q4

REPORT INFORMATION
  Report Type: 
  Country: None (occurrence: None)
  Receive Date: 20041005
  Receipt Date: 20040629
  Transmission Date: 20050328
  Serious: Yes (Life-Threatening, Hospitalization)
  Sender: FDA-Public Use
  Company Number: 237890

PATIENT
  Age: 20 Year
  Sex: Female

DRUGS (2)
  1. NOVOLOG [Suspect]
     Indication: DIABETES MELLITUS INSULIN-DEPENDENT
     Dosage: SUBCUTAN.-PUMP
     Route: 058
     Dates: start: 20040401, end: 20040415
  2. ANIMAS INSULIN PUMP [Concomitant]

REACTIONS (1)
  - HYPOGLYCAEMIC COMA [None]
